FAERS Safety Report 13472402 (Version 1)
Quarter: 2017Q2

REPORT INFORMATION
  Report Type: Spontaneous
  Country: US (occurrence: US)
  Receive Date: 20170422
  Receipt Date: 20170422
  Transmission Date: 20170830
  Serious: No
  Sender: FDA-Public Use
  Company Number: None

PATIENT
  Age: 69 Year
  Sex: Female
  Weight: 60.75 kg

DRUGS (7)
  1. CRESTAR [Concomitant]
  2. BIOTIN [Concomitant]
     Active Substance: BIOTIN
  3. DAILY VITAMINS ^ONE A DAY^ [Concomitant]
     Active Substance: VITAMINS
  4. CQ10 [Concomitant]
     Active Substance: UBIDECARENONE
  5. SKIN, HAIR,  NAILS VITAMIN [Concomitant]
  6. VITAMIN D [Concomitant]
     Active Substance: CHOLECALCIFEROL
  7. PENNSAID [Suspect]
     Active Substance: DICLOFENAC SODIUM
     Indication: PERIPHERAL SWELLING
     Dosage: 2 PUMPS OF CREAM TWICE A DAY TOPICAL
     Route: 061
     Dates: start: 20170403, end: 20170405

REACTIONS (5)
  - Rash [None]
  - Peripheral swelling [None]
  - Scab [None]
  - Pruritus [None]
  - Skin exfoliation [None]

NARRATIVE: CASE EVENT DATE: 20170403
